FAERS Safety Report 7874798-4 (Version None)
Quarter: 2011Q4

REPORT INFORMATION
  Report Type: 
  Country: None (occurrence: None)
  Receive Date: 20111031
  Receipt Date: 20111027
  Transmission Date: 20120403
  Serious: Yes (Hospitalization)
  Sender: FDA-Public Use
  Company Number: IT-BAYER-2011-104737

PATIENT
  Age: 70 Year
  Sex: Female

DRUGS (1)
  1. NEXAVAR [Suspect]
     Indication: HEPATIC NEOPLASM MALIGNANT NON-RESECTABLE
     Dosage: DAILY DOSE 800 MG
     Route: 048
     Dates: start: 20110601, end: 20110921

REACTIONS (3)
  - VENA CAVA THROMBOSIS [None]
  - CHEST PAIN [None]
  - ASTHENIA [None]
